FAERS Safety Report 9176616 (Version 1)
Quarter: 2013Q1

REPORT INFORMATION
  Report Type: Spontaneous
  Country: US (occurrence: US)
  Receive Date: 20130321
  Receipt Date: 20130321
  Transmission Date: 20140127
  Serious: Yes (Other)
  Sender: FDA-Public Use
  Company Number: US-JNJFOC-20130308282

PATIENT
  Sex: Female

DRUGS (1)
  1. LISTERINE UNSPECIFIED [Suspect]
     Indication: DENTAL DISORDER PROPHYLAXIS
     Route: 048

REACTIONS (2)
  - Tongue blistering [Unknown]
  - Glossodynia [Unknown]
